FAERS Safety Report 25969079 (Version 1)
Quarter: 2025Q4

REPORT INFORMATION
  Report Type: Spontaneous
  Country: EU (occurrence: EU)
  Receive Date: 20251028
  Receipt Date: 20251028
  Transmission Date: 20260117
  Serious: Yes (Other)
  Sender: AUROBINDO
  Company Number: EU-MINISAL02-1062751

PATIENT
  Age: 71 Year
  Sex: Male
  Weight: 62 kg

DRUGS (2)
  1. OXALIPLATIN [Suspect]
     Active Substance: OXALIPLATIN
     Indication: Rectal adenocarcinoma
     Dosage: 177 MILLIGRAM
     Route: 042
     Dates: start: 20250828, end: 20250828
  2. XELODA [Suspect]
     Active Substance: CAPECITABINE
     Indication: Rectal adenocarcinoma
     Dosage: 2000 MILLIGRAM
     Route: 048
     Dates: start: 20250829, end: 20250911

REACTIONS (2)
  - Azotaemia [Unknown]
  - Haemoglobin decreased [Recovering/Resolving]

NARRATIVE: CASE EVENT DATE: 20250916
